FAERS Safety Report 14060437 (Version 1)
Quarter: 2017Q4

REPORT INFORMATION
  Report Type: Spontaneous
  Country: US (occurrence: US)
  Receive Date: 20171006
  Receipt Date: 20171006
  Transmission Date: 20180321
  Serious: No
  Sender: FDA-Public Use
  Company Number: US-AMGEN-USASP2017061942

PATIENT

DRUGS (2)
  1. PANITUMUMAB [Suspect]
     Active Substance: PANITUMUMAB
     Indication: COLON CANCER METASTATIC
     Dosage: UNK
     Route: 065
  2. VEMURAFENIB. [Concomitant]
     Active Substance: VEMURAFENIB
     Indication: COLON CANCER METASTATIC
     Dosage: UNK

REACTIONS (1)
  - Off label use [Unknown]
